FAERS Safety Report 24842521 (Version 4)
Quarter: 2025Q1

REPORT INFORMATION
  Report Type: Spontaneous
  Country: US (occurrence: US)
  Receive Date: 20250115
  Receipt Date: 20250314
  Transmission Date: 20250409
  Serious: Yes (Hospitalization, Other)
  Sender: MERCK SHARP & DOHME LLC
  Company Number: US-009507513-2412USA008162

PATIENT
  Age: 79 Year
  Sex: Female
  Weight: 56.2 kg

DRUGS (24)
  1. SOTATERCEPT [Suspect]
     Active Substance: SOTATERCEPT
     Indication: Product used for unknown indication
     Dosage: STRENGTH: 45 MG
     Route: 065
     Dates: start: 20240731, end: 20250102
  2. SOTATERCEPT [Suspect]
     Active Substance: SOTATERCEPT
  3. SOTATERCEPT [Suspect]
     Active Substance: SOTATERCEPT
  4. SOTATERCEPT [Suspect]
     Active Substance: SOTATERCEPT
  5. TYVASO DPI [Suspect]
     Active Substance: TREPROSTINIL
     Indication: Pulmonary arterial hypertension
     Route: 055
     Dates: start: 20231110
  6. TYVASO DPI [Suspect]
     Active Substance: TREPROSTINIL
     Indication: Pulmonary arterial hypertension
     Dosage: DOSE DESCRIPTION : 64 MICROGRAM, QID?DAILY DOSE : 256 MICROGRAM
     Route: 055
  7. REVATIO [Suspect]
     Active Substance: SILDENAFIL CITRATE
     Indication: Pulmonary hypertension
     Route: 048
     Dates: start: 20230515
  8. OPSUMIT [Suspect]
     Active Substance: MACITENTAN
     Indication: Product used for unknown indication
     Route: 048
     Dates: start: 20240520
  9. LIPITOR [Concomitant]
     Active Substance: ATORVASTATIN CALCIUM
  10. NORVASC [Concomitant]
     Active Substance: AMLODIPINE BESYLATE
  11. SYNTHROID [Concomitant]
     Active Substance: LEVOTHYROXINE SODIUM
     Dates: start: 20210601
  12. TYLENOL EXTRA STRENGTH [Concomitant]
     Active Substance: ACETAMINOPHEN
  13. METRONIDAZOLE [Concomitant]
     Active Substance: METRONIDAZOLE
  14. OXYMETAZOLINE HYDROCHLORIDE [Concomitant]
     Active Substance: OXYMETAZOLINE HYDROCHLORIDE
     Dates: start: 20240815
  15. TOPROL XL [Concomitant]
     Active Substance: METOPROLOL SUCCINATE
  16. ZESTRIL [Concomitant]
     Active Substance: LISINOPRIL
  17. OXYGEN [Concomitant]
     Active Substance: OXYGEN
  18. Bumex (Bumetanide) [Concomitant]
  19. FEBUXOSTAT [Concomitant]
     Active Substance: FEBUXOSTAT
  20. ELIQUIS [Concomitant]
     Active Substance: APIXABAN
     Route: 048
     Dates: start: 20250123, end: 20250204
  21. ELIQUIS [Concomitant]
     Active Substance: APIXABAN
  22. Cordarone (Amiodarone hydrochloride) [Concomitant]
  23. XANAX [Concomitant]
     Active Substance: ALPRAZOLAM
  24. Saline spray (Sodium chloride) [Concomitant]

REACTIONS (9)
  - Cardiac tamponade [Unknown]
  - Epistaxis [Unknown]
  - Haemothorax [Unknown]
  - Pericardial effusion [Unknown]
  - Right ventricular dilatation [Unknown]
  - Pericarditis [Unknown]
  - Atrial fibrillation [Unknown]
  - Atelectasis [Unknown]
  - Pneumothorax [Unknown]

NARRATIVE: CASE EVENT DATE: 20241214
